FAERS Safety Report 4947368-5 (Version None)
Quarter: 2006Q1

REPORT INFORMATION
  Report Type: 
  Country: None (occurrence: None)
  Receive Date: 20060317
  Receipt Date: 20051104
  Transmission Date: 20060701
  Serious: Yes (Hospitalization)
  Sender: FDA-Public Use
  Company Number: US-MERCK-0511USA01176

PATIENT
  Age: 62 Year
  Sex: Male

DRUGS (18)
  1. PROTONIX [Concomitant]
     Route: 065
  2. FOLIC ACID [Concomitant]
     Route: 065
  3. CELEXA [Concomitant]
     Route: 065
  4. NEURONTIN [Concomitant]
     Route: 065
  5. FAMOTIDINE [Concomitant]
     Route: 065
  6. NALTREXONE [Concomitant]
     Route: 065
  7. TRILEPTAL [Concomitant]
     Route: 065
  8. MIRTAZAPINE [Concomitant]
     Route: 065
  9. ARICEPT [Concomitant]
     Route: 065
  10. LASIX [Concomitant]
     Route: 065
  11. LEVOTHROID [Concomitant]
     Route: 065
  12. NITROGLYCERIN [Concomitant]
     Route: 061
  13. NITROGLYCERIN [Concomitant]
     Route: 060
  14. VIOXX [Suspect]
     Route: 048
     Dates: start: 20030101, end: 20031201
  15. ALLOPURINOL [Concomitant]
     Route: 065
  16. NIFEDIPINE [Concomitant]
     Route: 065
  17. CLONIDINE [Concomitant]
     Route: 065
  18. CELEBREX [Concomitant]
     Route: 065

REACTIONS (5)
  - CEREBRAL INFARCTION [None]
  - DIFFICULTY IN WALKING [None]
  - INCONTINENCE [None]
  - MEMORY IMPAIRMENT [None]
  - UNRESPONSIVE TO VERBAL STIMULI [None]
